FAERS Safety Report 8042826-1 (Version None)
Quarter: 2012Q1

REPORT INFORMATION
  Report Type: 
  Country: None (occurrence: None)
  Receive Date: 20120112
  Receipt Date: 20120104
  Transmission Date: 20120608
  Serious: Yes (Other)
  Sender: FDA-Public Use
  Company Number: CA-JNJFOC-20120101805

PATIENT
  Sex: Female
  Weight: 92 kg

DRUGS (14)
  1. HYDROCHLOROTHIAZIDE [Concomitant]
  2. PRAVACHOL [Concomitant]
  3. CELEBREX [Concomitant]
  4. GOLD [Concomitant]
  5. ATENOLOL [Concomitant]
  6. ASPIRIN [Concomitant]
  7. METHOTREXATE [Concomitant]
  8. PAXIL [Concomitant]
  9. NEXIUM [Concomitant]
  10. IMURAN [Concomitant]
  11. GLYBURIDE [Concomitant]
  12. REMICADE [Suspect]
     Indication: RHEUMATOID ARTHRITIS
     Dates: start: 20040401
  13. CYCLOBENZAPRINE [Concomitant]
  14. LYRICA [Concomitant]

REACTIONS (2)
  - MASS [None]
  - SJOGREN'S SYNDROME [None]
